FAERS Safety Report 8922816 (Version 2)
Quarter: 2013Q1

REPORT INFORMATION
  Report Type: Spontaneous
  Country: US (occurrence: US)
  Receive Date: 20121125
  Receipt Date: 20130213
  Transmission Date: 20140127
  Serious: Yes (Other)
  Sender: FDA-Public Use
  Company Number: US-BAYER-2012-120095

PATIENT
  Age: 22 Year
  Sex: Female
  Weight: 71.2 kg

DRUGS (6)
  1. MIRENA [Suspect]
     Indication: CONTRACEPTION
     Dosage: 20 MCG/24HR, CONT
     Route: 015
     Dates: start: 20121114
  2. XOPENEX [Concomitant]
     Indication: ASTHMA
     Dosage: UNK UNK, BID
  3. KLONOPIN [Concomitant]
     Indication: BIPOLAR DISORDER
     Dosage: 0.5 MG, TID
  4. ABILIFY [Concomitant]
     Indication: BIPOLAR DISORDER
     Dosage: DAILY DOSE 10 MG
  5. WELLBUTRIN XL [Concomitant]
     Dosage: DAILY DOSE 300 MG
  6. REMERON [Concomitant]
     Dosage: DAILY DOSE 15 MG

REACTIONS (2)
  - Post procedural haemorrhage [Recovering/Resolving]
  - Procedural pain [Recovering/Resolving]
